FAERS Safety Report 7418788-4 (Version None)
Quarter: 2011Q2

REPORT INFORMATION
  Report Type: 
  Country: None (occurrence: None)
  Receive Date: 20110415
  Receipt Date: 20110411
  Transmission Date: 20111010
  Serious: Yes (Other)
  Sender: FDA-Public Use
  Company Number: CHPA2011US05380

PATIENT
  Sex: Male

DRUGS (2)
  1. PREVACID 24 HR [Suspect]
     Indication: GASTROOESOPHAGEAL REFLUX DISEASE
     Dosage: 15 MG, QD
     Route: 048
     Dates: start: 20110314, end: 20110408
  2. PREVACID 24 HR [Suspect]
     Dosage: UNK, UNK
     Route: 048

REACTIONS (7)
  - OFF LABEL USE [None]
  - SURGERY [None]
  - DIZZINESS [None]
  - SPINAL OPERATION [None]
  - DYSPHONIA [None]
  - TREATMENT NONCOMPLIANCE [None]
  - INCORRECT DRUG ADMINISTRATION DURATION [None]
